FAERS Safety Report 6084662-1 (Version None)
Quarter: 2009Q1

REPORT INFORMATION
  Report Type: 
  Country: None (occurrence: None)
  Receive Date: 20090219
  Receipt Date: 20090210
  Transmission Date: 20090719
  Serious: Yes (Life-Threatening)
  Sender: FDA-Public Use
  Company Number: FR-GILEAD-2009-0020265

PATIENT
  Sex: Male

DRUGS (2)
  1. TRUVADA [Suspect]
     Route: 048
     Dates: start: 20080711, end: 20090106
  2. SUSTIVA [Suspect]
     Dates: start: 20080711, end: 20090106

REACTIONS (4)
  - ENCEPHALOPATHY [None]
  - HEPATITIS FULMINANT [None]
  - NAUSEA [None]
  - VOMITING [None]
